FAERS Safety Report 11812448 (Version 2)
Quarter: 2016Q1

REPORT INFORMATION
  Report Type: Spontaneous
  Country: IT (occurrence: IT)
  Receive Date: 20151208
  Receipt Date: 20160119
  Transmission Date: 20160525
  Serious: Yes (Hospitalization)
  Sender: FDA-Public Use
  Company Number: IT-ABBVIE-15P-083-1515495-00

PATIENT
  Age: 53 Year
  Sex: Male

DRUGS (1)
  1. VECLAM [Suspect]
     Active Substance: CLARITHROMYCIN
     Indication: IMPETIGO
     Route: 065
     Dates: start: 20151118, end: 20151118

REACTIONS (1)
  - Acute generalised exanthematous pustulosis [Recovering/Resolving]

NARRATIVE: CASE EVENT DATE: 20151118
